FAERS Safety Report 9649171 (Version 2)
Quarter: 2013Q4

REPORT INFORMATION
  Report Type: Spontaneous
  Country: US (occurrence: US)
  Receive Date: 20131028
  Receipt Date: 20131028
  Transmission Date: 20140711
  Serious: No
  Sender: FDA-Public Use
  Company Number: -SAAVPROD-POMP-1002805

PATIENT
  Age: 46 Year
  Sex: Female
  Weight: 69 kg

DRUGS (1)
  1. ALGLUCOSIDASE ALFA [Suspect]
     Indication: GLYCOGEN STORAGE DISEASE TYPE II
     Dosage: 20 MG/KG, Q2W
     Route: 042
     Dates: start: 2009

REACTIONS (2)
  - Rash [Recovered/Resolved]
  - Rash [Recovered/Resolved]
